FAERS Safety Report 7464856-0 (Version None)
Quarter: 2011Q2

REPORT INFORMATION
  Report Type: 
  Country: None (occurrence: None)
  Receive Date: 20110509
  Receipt Date: 20100110
  Transmission Date: 20111010
  Serious: Yes (Death, Other)
  Sender: FDA-Public Use
  Company Number: US-BAYER-201010475NA

PATIENT
  Age: 44 Year
  Sex: Male
  Weight: 80.726 kg

DRUGS (44)
  1. PROTAMINE SULFATE [Concomitant]
     Indication: PRODUCT USED FOR UNKNOWN INDICATION
     Dosage: UNK
     Route: 042
     Dates: start: 20071003, end: 20071003
  2. DOPAMINE HCL [Concomitant]
     Dosage: UNK
     Route: 042
     Dates: start: 20071001
  3. KANAMYCIN [Concomitant]
     Dosage: 1 G, UNK
     Route: 042
     Dates: start: 20071003
  4. AMIODARONE [Concomitant]
     Dosage: 200 MG, UNK
     Dates: start: 20070929
  5. KETOROLAC TROMETHAMINE [Concomitant]
     Dosage: 30 MG, UNK
     Route: 042
     Dates: start: 20070525
  6. CARDIOPLEGIA [Concomitant]
     Dosage: UNK
     Dates: start: 20071003
  7. PAVULON [Concomitant]
     Indication: PRODUCT USED FOR UNKNOWN INDICATION
     Dosage: UNK
     Route: 042
     Dates: start: 20071003
  8. ESMOLOL [Concomitant]
     Indication: PRODUCT USED FOR UNKNOWN INDICATION
     Dosage: UNK
     Dates: start: 20071003
  9. LOVENOX [Concomitant]
     Dosage: UNK
     Dates: start: 20070927, end: 20070928
  10. PROTAMINE SULFATE [Concomitant]
     Indication: COAGULATION TIME SHORTENED
  11. CONTRAST MEDIA [Concomitant]
     Indication: CORONARY ANGIOPLASTY
     Dosage: UNK
     Dates: start: 20070524, end: 20070524
  12. FRESH FROZEN PLASMA [Concomitant]
     Indication: CORONARY ARTERY BYPASS
     Dosage: 2 U, UNK
     Dates: start: 20071003, end: 20071003
  13. PLATELETS [Concomitant]
     Indication: CORONARY ARTERY BYPASS
     Dosage: 2 U, UNK
     Dates: start: 20071003, end: 20071003
  14. TOBRAMYCIN [Concomitant]
     Dosage: UNK
     Route: 042
     Dates: start: 20071215
  15. NITROGLYCERIN [Concomitant]
     Dosage: 0.25 MG DRIP
     Route: 042
     Dates: start: 20071003
  16. TRASYLOL [Suspect]
     Indication: CORONARY ARTERY BYPASS
     Dosage: 100 CC BOLUS FOLLOWED BY 25 CC/HR, 100 CC IN PUMP PRIME
     Route: 042
     Dates: start: 20071003, end: 20071003
  17. DIGOXIN [Concomitant]
     Indication: PRODUCT USED FOR UNKNOWN INDICATION
     Dosage: 0.125 MG, QD
     Route: 048
  18. ACETYLSALICYLIC ACID SRT [Concomitant]
     Dosage: 325 MG, QD
  19. FISH OIL [Concomitant]
     Indication: PRODUCT USED FOR UNKNOWN INDICATION
     Dosage: 500 MG, BID
  20. EPINEPHRINE [Concomitant]
     Indication: PRODUCT USED FOR UNKNOWN INDICATION
     Dosage: UNK
     Route: 042
     Dates: start: 20071003
  21. ANCEF [Concomitant]
     Indication: PRODUCT USED FOR UNKNOWN INDICATION
     Dosage: UNK
     Route: 042
     Dates: start: 20071003
  22. AMIKACIN [Concomitant]
     Dosage: 560 MG, UNK
     Route: 042
     Dates: start: 20071112, end: 20071113
  23. ZOCOR [Concomitant]
     Indication: PRODUCT USED FOR UNKNOWN INDICATION
     Dosage: 40 MG, QD
  24. HEPARIN [Concomitant]
     Indication: PRODUCT USED FOR UNKNOWN INDICATION
     Dosage: 46,000 UNITS
     Dates: start: 20071003, end: 20071003
  25. DIPRIVAN [Concomitant]
     Indication: PRODUCT USED FOR UNKNOWN INDICATION
     Dosage: UNK
     Route: 042
     Dates: start: 20071003
  26. PIPERACILLIN [Concomitant]
     Dosage: 3.375 G, UNK
     Route: 042
     Dates: start: 20070601
  27. BUMETANIDE [Concomitant]
     Dosage: UNK
     Route: 042
     Dates: start: 20070531
  28. MANNITOL [Concomitant]
     Dosage: UNK
     Dates: start: 20071003
  29. CARDIOPLEGIA [Concomitant]
     Dosage: UNK
     Dates: start: 20071003
  30. COREG [Concomitant]
     Indication: PRODUCT USED FOR UNKNOWN INDICATION
     Dosage: 10 MG, QD
  31. LASIX [Concomitant]
     Indication: PRODUCT USED FOR UNKNOWN INDICATION
     Dosage: 20 MG, BID
  32. DOPAMINE HCL [Concomitant]
     Indication: PRODUCT USED FOR UNKNOWN INDICATION
     Route: 042
  33. KETAMINE [Concomitant]
     Indication: PRODUCT USED FOR UNKNOWN INDICATION
     Dosage: UNK
     Route: 042
     Dates: start: 20071003
  34. ROCEPHIN [Concomitant]
     Dosage: 1 G, UNK
     Dates: start: 20070525
  35. DILTIAZEM [Concomitant]
     Dosage: UNK
     Route: 042
     Dates: start: 20071125
  36. REOPRO [Concomitant]
     Dosage: UNK
     Dates: start: 20070524, end: 20070525
  37. TRASYLOL [Suspect]
     Indication: INTRA-AORTIC BALLOON PLACEMENT
  38. METOPROLOL [Concomitant]
     Dosage: 12.5 MG, UNK
     Dates: start: 20070901
  39. CEFUROXIME [Concomitant]
     Dosage: 1.5 G, UNK
     Dates: start: 20071003
  40. EZETIMIBE [Concomitant]
     Dosage: UNK
     Route: 048
     Dates: start: 20070929
  41. PLAVIX [Concomitant]
     Indication: PRODUCT USED FOR UNKNOWN INDICATION
     Dosage: 75 MG, QD
     Route: 048
  42. DOPAMINE HCL [Concomitant]
     Dosage: 400 MG, UNK
     Route: 042
     Dates: start: 20071001
  43. VISIPAQUE [Concomitant]
     Indication: CATHETERISATION CARDIAC
     Dosage: 150 ML, UNK
     Dates: start: 20070928, end: 20070928
  44. LEVAQUIN [Concomitant]
     Dosage: 750 MG, UNK
     Route: 042
     Dates: start: 20071002

REACTIONS (31)
  - MULTI-ORGAN FAILURE [None]
  - RENAL FAILURE [None]
  - PULMONARY HYPERTENSION [None]
  - SEPTIC SHOCK [None]
  - PANCREATITIS [None]
  - PAIN [None]
  - FEAR [None]
  - DISSEMINATED INTRAVASCULAR COAGULATION [None]
  - ABDOMINAL DISTENSION [None]
  - ACUTE RESPIRATORY FAILURE [None]
  - ASCITES [None]
  - BACTERAEMIA [None]
  - DEPRESSION [None]
  - ACUTE MYOCARDIAL INFARCTION [None]
  - CEREBROVASCULAR ACCIDENT [None]
  - LIPASE INCREASED [None]
  - UNEVALUABLE EVENT [None]
  - RENAL FAILURE ACUTE [None]
  - CARDIOGENIC SHOCK [None]
  - INTESTINAL ISCHAEMIA [None]
  - LIVER FUNCTION TEST ABNORMAL [None]
  - DEATH [None]
  - ARRHYTHMIA SUPRAVENTRICULAR [None]
  - CARDIAC FAILURE ACUTE [None]
  - HYPOTENSION [None]
  - ILEUS [None]
  - INJURY [None]
  - ANXIETY [None]
  - THROMBOCYTOPENIA [None]
  - LUNG INFILTRATION [None]
  - ANHEDONIA [None]
